FAERS Safety Report 7164571-7 (Version None)
Quarter: 2010Q4

REPORT INFORMATION
  Report Type: 
  Country: None (occurrence: None)
  Receive Date: 20101123
  Receipt Date: 20100908
  Transmission Date: 20110411
  Serious: No
  Sender: FDA-Public Use
  Company Number: 018617

PATIENT
  Sex: Male
  Weight: 52.2 kg

DRUGS (2)
  1. CIMZIA [Suspect]
     Indication: CROHN'S DISEASE
     Dosage: 400 MG 1X/4 WEEKS SUBCUTANEOUS
     Route: 058
     Dates: start: 20100617
  2. FLAGYL [Concomitant]

REACTIONS (3)
  - FISTULA [None]
  - INFECTION [None]
  - WEIGHT DECREASED [None]
